FAERS Safety Report 23902928 (Version 2)
Quarter: 2024Q2

REPORT INFORMATION
  Report Type: Spontaneous
  Country: SI (occurrence: SI)
  Receive Date: 20240527
  Receipt Date: 20240614
  Transmission Date: 20240715
  Serious: Yes (Other)
  Sender: FDA-Public Use
  Company Number: SI-AMGEN-SVNSP2024095593

PATIENT
  Age: 72 Year
  Sex: Female

DRUGS (2)
  1. DARZALEX [Suspect]
     Active Substance: DARATUMUMAB
     Indication: Product used for unknown indication
     Dosage: 1800 MILLIGRAM
     Route: 058
  2. KYPROLIS [Suspect]
     Active Substance: CARFILZOMIB
     Indication: Plasma cell myeloma
     Dosage: 70 MILLIGRAM/SQ. METER

REACTIONS (2)
  - Deep vein thrombosis [Recovered/Resolved]
  - Arteriosclerosis [Recovered/Resolved]
